FAERS Safety Report 5825161-9 (Version None)
Quarter: 2008Q3

REPORT INFORMATION
  Report Type: 
  Country: None (occurrence: None)
  Receive Date: 20080729
  Receipt Date: 20080724
  Transmission Date: 20090109
  Serious: Yes (Death)
  Sender: FDA-Public Use
  Company Number: CN-BAYER-200822987GPV

PATIENT
  Age: 25 Year
  Sex: Female
  Weight: 53 kg

DRUGS (2)
  1. NEXAVAR [Suspect]
     Indication: RENAL CELL CARCINOMA
     Dosage: TOTAL DAILY DOSE: 800 MG
     Route: 048
     Dates: start: 20080614, end: 20080701
  2. INTERFERON ALFA [Suspect]
     Indication: RENAL CELL CARCINOMA
     Route: 042
     Dates: start: 20080614, end: 20080701

REACTIONS (5)
  - CHEST DISCOMFORT [None]
  - DYSPNOEA [None]
  - NERVOUSNESS [None]
  - PYREXIA [None]
  - RESPIRATORY FAILURE [None]
